FAERS Safety Report 18190418 (Version 4)
Quarter: 2020Q3

REPORT INFORMATION
  Report Type: Report from Study
  Country: US (occurrence: US)
  Receive Date: 20200825
  Receipt Date: 20200925
  Transmission Date: 20201103
  Serious: Yes (Hospitalization, Other)
  Sender: FDA-Public Use
  Company Number: US-EMD SERONO-9064158

PATIENT
  Age: 72 Year
  Sex: Female

DRUGS (3)
  1. TRAMADOL. [Concomitant]
     Active Substance: TRAMADOL
     Indication: PRODUCT USED FOR UNKNOWN INDICATION
  2. REBIF [Suspect]
     Active Substance: INTERFERON BETA-1A
     Indication: MULTIPLE SCLEROSIS
     Route: 058
     Dates: start: 20100119
  3. REBIF [Suspect]
     Active Substance: INTERFERON BETA-1A
     Route: 058
     Dates: start: 20141216

REACTIONS (16)
  - Device dislocation [Recovered/Resolved]
  - Lethargy [Unknown]
  - Intensive care [Unknown]
  - Blood pressure increased [Unknown]
  - Back pain [Not Recovered/Not Resolved]
  - Muscle spasms [Unknown]
  - Injection site pain [Unknown]
  - Sciatica [Unknown]
  - Accidental overdose [Unknown]
  - Product dose omission issue [Unknown]
  - Malaise [Unknown]
  - Gait disturbance [Unknown]
  - Intervertebral disc protrusion [Recovering/Resolving]
  - Hypoaesthesia [Not Recovered/Not Resolved]
  - Lack of injection site rotation [Unknown]
  - Vomiting [Unknown]

NARRATIVE: CASE EVENT DATE: 2020
